FAERS Safety Report 8973539 (Version 1)
Quarter: 2012Q4

REPORT INFORMATION
  Report Type: 
  Country: HU (occurrence: HU)
  Receive Date: 20121218
  Receipt Date: 20121218
  Transmission Date: 20130627
  Serious: Yes (Other)
  Sender: FDA-Public Use
  Company Number: PHHY2012HU115879

PATIENT
  Sex: Female

DRUGS (2)
  1. ONBREZ [Suspect]
     Indication: CHRONIC OBSTRUCTIVE PULMONARY DISEASE
  2. SERETIDE [Concomitant]

REACTIONS (5)
  - Asphyxia [Unknown]
  - Choking [Unknown]
  - Movement disorder [Unknown]
  - Arthralgia [Unknown]
  - Musculoskeletal pain [Unknown]
